FAERS Safety Report 8696384 (Version 2)
Quarter: 2013Q4

REPORT INFORMATION
  Report Type: Report from Study
  Country: US (occurrence: US)
  Receive Date: 20120801
  Receipt Date: 20131101
  Transmission Date: 20140711
  Serious: No
  Sender: FDA-Public Use
  Company Number: US-009507513-1207USA004016

PATIENT
  Sex: Female
  Weight: 61.68 kg

DRUGS (1)
  1. IMPLANON [Suspect]
     Dosage: UNK MG, UNK
     Dates: start: 20100909, end: 20120710

REACTIONS (1)
  - Menstruation irregular [Unknown]
